FAERS Safety Report 10077612 (Version 1)
Quarter: 2014Q2

REPORT INFORMATION
  Report Type: Spontaneous
  Country: DK (occurrence: FR)
  Receive Date: 20140414
  Receipt Date: 20140414
  Transmission Date: 20141212
  Serious: Yes (Hospitalization)
  Sender: FDA-Public Use
  Company Number: FR-FRI-1000066379

PATIENT
  Age: 47 Year
  Sex: Male

DRUGS (3)
  1. ESCITALOPRAM [Suspect]
     Indication: BIPOLAR DISORDER
     Route: 048
  2. XEROQUEL [Suspect]
     Indication: BIPOLAR DISORDER
     Dosage: 300 MG
     Route: 048
  3. NOCTAMIDE [Suspect]
     Route: 048

REACTIONS (3)
  - Transaminases increased [Unknown]
  - Gamma-glutamyltransferase increased [Unknown]
  - Off label use [Unknown]
